FAERS Safety Report 4688181-6 (Version None)
Quarter: 2005Q2

REPORT INFORMATION
  Report Type: 
  Country: None (occurrence: None)
  Receive Date: 20050609
  Receipt Date: 20050602
  Transmission Date: 20051028
  Serious: Yes (Other)
  Sender: FDA-Public Use
  Company Number: 26732

PATIENT
  Age: 73 Year
  Sex: Female

DRUGS (5)
  1. ALDARA [Suspect]
     Indication: ACTINIC KERATOSIS
     Dosage: (3 IN 1 WEEK(S)), TOPICAL
     Route: 061
     Dates: start: 20030314, end: 20030414
  2. CEPHALEXIN [Suspect]
     Indication: INFECTION
     Dosage: (4 IN 1 DAY(S)), ORAL
     Route: 048
     Dates: start: 20030601, end: 20030601
  3. PREDNISONE [Suspect]
     Dosage: (1 IN 1 DAY(S)), ORAL
     Route: 048
     Dates: start: 20030620, end: 20030630
  4. PROTOPIC [Suspect]
     Dosage: (2 IN 1 DAY(S)), TOPICAL
     Route: 061
     Dates: start: 20030630, end: 20030701
  5. CUTIVATE [Suspect]
     Dosage: (2 IN 1 DAY(S)), TOPICAL
     Route: 061
     Dates: start: 20030630, end: 20030701

REACTIONS (12)
  - APPLICATION SITE DISCHARGE [None]
  - APPLICATION SITE ERYTHEMA [None]
  - APPLICATION SITE INFECTION [None]
  - APPLICATION SITE INFLAMMATION [None]
  - APPLICATION SITE REACTION [None]
  - APPLICATION SITE ULCER [None]
  - NECROSIS [None]
  - NO THERAPEUTIC RESPONSE [None]
  - PURULENT DISCHARGE [None]
  - PYODERMA GANGRENOSUM [None]
  - SQUAMOUS CELL CARCINOMA [None]
  - STAPHYLOCOCCAL INFECTION [None]
